FAERS Safety Report 8995780 (Version 1)
Quarter: 2013Q1

REPORT INFORMATION
  Report Type: Spontaneous
  Country: US (occurrence: US)
  Receive Date: 20130103
  Receipt Date: 20130103
  Transmission Date: 20140127
  Serious: No
  Sender: FDA-Public Use
  Company Number: US-ABBOTT-12P-163-0952708-00

PATIENT
  Sex: Female
  Weight: 49.94 kg

DRUGS (7)
  1. SYNTHROID [Suspect]
     Indication: THYROID DISORDER
     Dates: start: 2004, end: 201111
  2. SYNTHROID [Suspect]
     Dates: start: 20120207, end: 20120606
  3. SYNTHROID [Suspect]
     Indication: THYROID DISORDER
     Dates: start: 2004, end: 201111
  4. SYNTHROID [Suspect]
     Dates: start: 201111, end: 20120207
  5. SYNTHROID [Suspect]
     Dates: start: 20120207, end: 20120606
  6. SYNTHROID [Suspect]
     Dates: start: 20120607
  7. B-12 [Concomitant]
     Indication: PERNICIOUS ANAEMIA

REACTIONS (10)
  - Blood thyroid stimulating hormone increased [Not Recovered/Not Resolved]
  - Heart rate increased [Recovering/Resolving]
  - Drug ineffective [Not Recovered/Not Resolved]
  - Muscle spasms [Recovering/Resolving]
  - Hypoaesthesia [Recovering/Resolving]
  - Constipation [Recovering/Resolving]
  - Abdominal rigidity [Recovering/Resolving]
  - Feeling cold [Recovering/Resolving]
  - Feeling abnormal [Unknown]
  - Product quality issue [Unknown]
